FAERS Safety Report 8068170-4 (Version None)
Quarter: 2012Q1

REPORT INFORMATION
  Report Type: 
  Country: None (occurrence: None)
  Receive Date: 20120124
  Receipt Date: 20110831
  Transmission Date: 20120608
  Serious: No
  Sender: FDA-Public Use
  Company Number: US-AMGEN-USASP2011044877

PATIENT
  Age: 47 Year
  Sex: Female

DRUGS (6)
  1. FISH OIL [Concomitant]
     Dosage: UNK
  2. ALLERGY MEDICATION [Concomitant]
     Dosage: UNK
  3. CITRACAL                           /00471001/ [Concomitant]
     Dosage: UNK
  4. PROLIA [Suspect]
     Indication: OSTEOPENIA
     Dosage: 60 MG, UNK
     Dates: start: 20100301
  5. MULTIVITAMIN                       /00097801/ [Concomitant]
     Dosage: UNK
  6. CALTRATE + VITAMIN D [Concomitant]
     Dosage: UNK

REACTIONS (1)
  - PAIN IN EXTREMITY [None]
